FAERS Safety Report 10283545 (Version 1)
Quarter: 2014Q3

REPORT INFORMATION
  Report Type: Spontaneous
  Country: US (occurrence: US)
  Receive Date: 20140708
  Receipt Date: 20140708
  Transmission Date: 20150326
  Serious: Yes (Hospitalization)
  Sender: FDA-Public Use
  Company Number: US-JNJFOC-20140700340

PATIENT
  Sex: Female
  Weight: 74.84 kg

DRUGS (2)
  1. UNSPECIFIED ITRACONAZOLE [Suspect]
     Active Substance: ITRACONAZOLE
     Indication: PULMONARY MYCOSIS
     Route: 065
  2. SPORANOX [Suspect]
     Active Substance: ITRACONAZOLE\SODIUM CHLORIDE
     Indication: FUNGAL SKIN INFECTION
     Route: 048
     Dates: start: 2014

REACTIONS (4)
  - Fear of death [Unknown]
  - Feeling abnormal [None]
  - Asthma [Not Recovered/Not Resolved]
  - Alopecia [Unknown]

NARRATIVE: CASE EVENT DATE: 2014
